FAERS Safety Report 5109338-6 (Version None)
Quarter: 2006Q3

REPORT INFORMATION
  Report Type: 
  Country: None (occurrence: None)
  Receive Date: 20060920
  Receipt Date: 20060818
  Transmission Date: 20061208
  Serious: Yes (Other)
  Sender: FDA-Public Use
  Company Number: US-ROCHE-460278

PATIENT
  Age: 60 Year
  Sex: Female

DRUGS (5)
  1. PEGASYS [Suspect]
     Dosage: STRENGTH REPORTED AS 180MCG/0.5ML.
     Route: 058
     Dates: start: 20050302, end: 20060126
  2. RIBAVIRIN [Suspect]
     Route: 048
     Dates: start: 20050302, end: 20060126
  3. WELLBUTRIN [Concomitant]
     Indication: DEPRESSION
     Route: 048
  4. GLYBURIDE [Concomitant]
     Dosage: DOSING AMOUNT: ONE TABLET TWO TIMES A DAY IF BLOOD SUGAR VALUE IS OVER 150.
     Route: 048
     Dates: start: 19970615
  5. LISINOPRIL [Concomitant]
     Indication: HYPERTENSION
     Route: 048

REACTIONS (1)
  - RENAL FAILURE [None]
